FAERS Safety Report 8332663-2 (Version None)
Quarter: 2012Q2

REPORT INFORMATION
  Report Type: 
  Country: None (occurrence: None)
  Receive Date: 20120503
  Receipt Date: 20120418
  Transmission Date: 20120825
  Serious: Yes (Hospitalization, Other)
  Sender: FDA-Public Use
  Company Number: CN-JNJFOC-20110307780

PATIENT
  Sex: Female

DRUGS (3)
  1. TOPIRAMATE [Suspect]
     Route: 048
     Dates: start: 20100701
  2. TOPIRAMATE [Suspect]
     Indication: EPILEPSY
     Dosage: 50 MG THRICE A DAY
     Route: 048
     Dates: start: 20100701
  3. TOPIRAMATE [Suspect]
     Route: 048
     Dates: end: 20110314

REACTIONS (3)
  - PHARYNGEAL DISORDER [None]
  - NASAL DRYNESS [None]
  - DRY THROAT [None]
